FAERS Safety Report 8266632 (Version 2)
Quarter: 2013Q4

REPORT INFORMATION
  Report Type: Spontaneous
  Country: US (occurrence: US)
  Receive Date: 20111129
  Receipt Date: 20131122
  Transmission Date: 20140711
  Serious: No
  Sender: FDA-Public Use
  Company Number: US-GLAXOSMITHKLINE-A0938809A

PATIENT
  Age: 57 Year
  Sex: Female

DRUGS (9)
  1. WELLBUTRIN SR [Suspect]
     Indication: DEPRESSION
     Dosage: 200MG TWICE PER DAY
     Route: 048
     Dates: start: 201103
  2. TRAZODONE [Concomitant]
  3. CITALOPRAM [Concomitant]
  4. OMEPRAZOLE [Concomitant]
  5. LEVOTHYROXINE [Concomitant]
  6. VITAMIN D [Concomitant]
  7. VITAMIN B6 [Concomitant]
  8. VITAMIN E [Concomitant]
  9. VITAMIN B12 [Concomitant]

REACTIONS (7)
  - Insomnia [Unknown]
  - Fatigue [Unknown]
  - Depression [Unknown]
  - Speech disorder [Unknown]
  - Hypervigilance [Unknown]
  - Drug ineffective [Not Recovered/Not Resolved]
  - Thinking abnormal [Not Recovered/Not Resolved]
